FAERS Safety Report 9631160 (Version 1)
Quarter: 2013Q4

REPORT INFORMATION
  Report Type: Spontaneous
  Country: IR (occurrence: IR)
  Receive Date: 20131018
  Receipt Date: 20131018
  Transmission Date: 20140711
  Serious: Yes (Hospitalization)
  Sender: FDA-Public Use
  Company Number: IR-MYLANLABS-2013S1022733

PATIENT
  Age: 43 Year
  Sex: Female

DRUGS (6)
  1. MYCOPHENOLATE MOFETIL [Suspect]
     Indication: IMMUNOSUPPRESSANT DRUG THERAPY
     Route: 065
  2. CICLOSPORIN [Suspect]
     Indication: IMMUNOSUPPRESSANT DRUG THERAPY
     Route: 065
  3. GANCICLOVIR [Concomitant]
     Route: 065
  4. PREDNISOLONE [Concomitant]
     Dosage: 10MG DAILY
     Route: 065
  5. VALGANCICLOVIR [Concomitant]
     Route: 065
  6. AMPHOTERICIN B [Concomitant]
     Indication: EVIDENCE BASED TREATMENT
     Route: 065

REACTIONS (3)
  - Cytomegalovirus infection [Unknown]
  - Tuberculosis [Recovered/Resolved]
  - Immune reconstitution inflammatory syndrome [Recovered/Resolved]
